FAERS Safety Report 11357685 (Version 1)
Quarter: 2015Q3

REPORT INFORMATION
  Report Type: Spontaneous
  Country: US (occurrence: US)
  Receive Date: 20150803
  Receipt Date: 20150803
  Transmission Date: 20151125
  Serious: Yes (Other)
  Sender: FDA-Public Use
  Company Number: US-ELI_LILLY_AND_COMPANY-US201111006262

PATIENT
  Sex: Female

DRUGS (6)
  1. CLOZAPINE. [Concomitant]
     Active Substance: CLOZAPINE
  2. INVEGA [Concomitant]
     Active Substance: PALIPERIDONE
  3. ABILIFY [Concomitant]
     Active Substance: ARIPIPRAZOLE
  4. SEROQUEL [Concomitant]
     Active Substance: QUETIAPINE FUMARATE
  5. ZYPREXA ZYDIS [Suspect]
     Active Substance: OLANZAPINE
     Indication: SCHIZOAFFECTIVE DISORDER
     Dosage: 10 MG, UNK
     Dates: start: 2009, end: 201111
  6. ASENAPINE [Concomitant]
     Active Substance: ASENAPINE

REACTIONS (3)
  - Weight increased [Not Recovered/Not Resolved]
  - Hyperglycaemia [Unknown]
  - Metabolic syndrome [Unknown]
